FAERS Safety Report 6926092-3 (Version None)
Quarter: 2010Q3

REPORT INFORMATION
  Report Type: 
  Country: None (occurrence: None)
  Receive Date: 20100816
  Receipt Date: 20100804
  Transmission Date: 20110219
  Serious: Yes (Other)
  Sender: FDA-Public Use
  Company Number: US-PFIZER INC-2010086758

PATIENT
  Sex: Female
  Weight: 52.608 kg

DRUGS (4)
  1. CHANTIX [Suspect]
     Indication: SMOKING CESSATION THERAPY
     Dosage: UNK
     Dates: start: 20090101
  2. CHANTIX [Suspect]
     Dosage: 0.5 MG, 1X/DAY
     Dates: start: 20100101, end: 20100701
  3. TENORMIN [Concomitant]
     Indication: BLOOD PRESSURE
     Dosage: UNK
  4. ACTONEL [Concomitant]
     Indication: OSTEOARTHRITIS
     Dosage: UNK

REACTIONS (2)
  - AGGRESSION [None]
  - ANGER [None]
